FAERS Safety Report 7030875-1 (Version None)
Quarter: 2010Q4

REPORT INFORMATION
  Report Type: 
  Country: None (occurrence: None)
  Receive Date: 20101006
  Receipt Date: 20100929
  Transmission Date: 20110411
  Serious: Yes (Other)
  Sender: FDA-Public Use
  Company Number: DE-BAYER-201020325GPV

PATIENT
  Age: 37 Year
  Sex: Female
  Weight: 60 kg

DRUGS (2)
  1. MIRENA [Suspect]
     Indication: CONTRACEPTION
     Route: 015
     Dates: start: 20090109, end: 20100325
  2. ITRAKOL (ITROCONAZOL) [Concomitant]
     Indication: ONYCHOMYCOSIS
     Dates: start: 20100301

REACTIONS (12)
  - ALOPECIA [None]
  - ANXIETY [None]
  - DEPRESSION [None]
  - HYPERTENSION [None]
  - HYPOAESTHESIA [None]
  - HYPOAESTHESIA FACIAL [None]
  - LIBIDO DECREASED [None]
  - MYALGIA [None]
  - PAIN [None]
  - TACHYCARDIA [None]
  - URTICARIA [None]
  - VIITH NERVE PARALYSIS [None]
